FAERS Safety Report 11467674 (Version 1)
Quarter: 2015Q3

REPORT INFORMATION
  Report Type: Report from Study
  Country: CA (occurrence: CA)
  Receive Date: 20150908
  Receipt Date: 20150908
  Transmission Date: 20151125
  Serious: Yes (Hospitalization)
  Sender: FDA-Public Use
  Company Number: PHHY2015CA107241

PATIENT
  Sex: Male

DRUGS (1)
  1. TOBI [Suspect]
     Active Substance: TOBRAMYCIN
     Indication: CYSTIC FIBROSIS
     Dosage: UNK
     Route: 065
     Dates: start: 201411

REACTIONS (5)
  - Throat irritation [Unknown]
  - Infective pulmonary exacerbation of cystic fibrosis [Unknown]
  - Cystic fibrosis [Unknown]
  - Pleural effusion [Unknown]
  - Condition aggravated [Unknown]
